FAERS Safety Report 4535316-1 (Version None)
Quarter: 2004Q4

REPORT INFORMATION
  Report Type: 
  Country: None (occurrence: None)
  Receive Date: 20041214
  Receipt Date: 20040914
  Transmission Date: 20050328
  Serious: No
  Sender: FDA-Public Use
  Company Number: 2004235979US

PATIENT
  Age: 27 Year
  Sex: Male
  Weight: 63.5 kg

DRUGS (2)
  1. BEXTRA [Suspect]
     Indication: MYALGIA
     Dosage: 10 MG, QD, ORAL
     Route: 048
     Dates: start: 20040910, end: 20040910
  2. SKLAXIN (METAXALONE) [Suspect]
     Dosage: 800 MG, QD, ORAL
     Route: 048
     Dates: start: 20040910, end: 20040910

REACTIONS (3)
  - DIARRHOEA [None]
  - EYE IRRITATION [None]
  - EYE SWELLING [None]
